FAERS Safety Report 4332820-6 (Version None)
Quarter: 2004Q1

REPORT INFORMATION
  Report Type: 
  Country: None (occurrence: None)
  Receive Date: 20040330
  Receipt Date: 20040319
  Transmission Date: 20041129
  Serious: Yes (Hospitalization)
  Sender: FDA-Public Use
  Company Number: T03-USA-04176-00

PATIENT
  Age: 74 Year
  Sex: Male
  Weight: 94.8018 kg

DRUGS (19)
  1. MEMANTINE (OPEN LABEL, PHASE C) (MEMANTINE) [Suspect]
     Indication: DEMENTIA ALZHEIMER'S TYPE
     Dosage: 20 MG QD PO
     Route: 048
     Dates: end: 20030930
  2. MEMANTINE (OPEN LABEL, PHASE C) (MEMANTINE) [Suspect]
     Indication: DEMENTIA ALZHEIMER'S TYPE
     Dosage: 20 MG QD PO
     Route: 048
     Dates: start: 20031002
  3. MEMANTINE (OPEN LABEL, PHASE B) (MEMANTINE) [Suspect]
     Indication: DEMENTIA ALZHEIMER'S TYPE
     Dosage: 20 MG QD PO
     Route: 048
     Dates: start: 20020726
  4. MEMANTINE (DOUBLE BLIND, PHASE A) (MEMANTINE) [Suspect]
     Indication: DEMENTIA ALZHEIMER'S TYPE
     Dosage: 2 TABLET BID PO
     Route: 048
  5. CATAPRES-TTS-1 [Suspect]
     Indication: HYPERTENSION
     Dates: start: 20030923, end: 20030930
  6. TERAZOSIN HCL [Concomitant]
  7. VITAMIN E (VITAMIN E 0011/05/) [Concomitant]
  8. ASPIRIN [Concomitant]
  9. AMLODIPINE [Concomitant]
  10. FLUVASTATIN [Concomitant]
  11. FUROSEMIDE [Concomitant]
  12. ATORVASTATIN [Concomitant]
  13. LISINOPRIL [Concomitant]
  14. DOXYCYCLINE [Concomitant]
  15. CIPROFLOXACIN [Concomitant]
  16. MIRALAX [Concomitant]
  17. DOCUSATE SODIUM [Concomitant]
  18. ACETAMINOPHEN [Concomitant]
  19. ATENOLOL [Concomitant]

REACTIONS (12)
  - AORTIC VALVE DISEASE [None]
  - ATRIAL FIBRILLATION [None]
  - BLOOD PRESSURE INCREASED [None]
  - CONSTIPATION [None]
  - DILATATION ATRIAL [None]
  - DISEASE RECURRENCE [None]
  - FATIGUE [None]
  - MITRAL VALVE DISEASE [None]
  - SICK SINUS SYNDROME [None]
  - TRICUSPID VALVE INCOMPETENCE [None]
  - URINARY TRACT INFECTION [None]
  - VENTRICULAR HYPERTROPHY [None]
